FAERS Safety Report 10085232 (Version 1)
Quarter: 2014Q2

REPORT INFORMATION
  Report Type: Spontaneous
  Country: US (occurrence: US)
  Receive Date: 20140417
  Receipt Date: 20140417
  Transmission Date: 20141212
  Serious: Yes (Other)
  Sender: FDA-Public Use
  Company Number: US-ROXANE LABORATORIES, INC.-2014-RO-00624RO

PATIENT
  Age: 44 Year
  Sex: Male

DRUGS (1)
  1. METHADONE [Suspect]
     Indication: DRUG DEPENDENCE
     Dosage: 90 MG
     Route: 048
     Dates: start: 20140131

REACTIONS (1)
  - Rhabdomyolysis [Unknown]
